FAERS Safety Report 11500058 (Version 2)
Quarter: 2015Q4

REPORT INFORMATION
  Report Type: Spontaneous
  Country: RU (occurrence: RU)
  Receive Date: 20150914
  Receipt Date: 20151008
  Transmission Date: 20160304
  Serious: Yes (Other)
  Sender: FDA-Public Use
  Company Number: RU-BAYER-2015-417919

PATIENT
  Age: 32 Year
  Sex: Female

DRUGS (1)
  1. QLAIRA [Suspect]
     Active Substance: DIENOGEST\ESTRADIOL VALERATE
     Dosage: UNK
     Route: 048
     Dates: start: 201208

REACTIONS (5)
  - Chronic tonsillitis [Recovered/Resolved]
  - Metrorrhagia [Recovered/Resolved]
  - Breast pain [Recovered/Resolved]
  - Metrorrhagia [Recovered/Resolved]
  - Abdominal pain lower [Recovered/Resolved]

NARRATIVE: CASE EVENT DATE: 201305
